FAERS Safety Report 4731035-7 (Version None)
Quarter: 2005Q3

REPORT INFORMATION
  Report Type: 
  Country: None (occurrence: None)
  Receive Date: 20050719
  Receipt Date: 20041115
  Transmission Date: 20060218
  Serious: Yes (Other)
  Sender: FDA-Public Use
  Company Number: 2004BI002100

PATIENT
  Age: 46 Year
  Sex: Female
  Weight: 110 kg

DRUGS (14)
  1. AVONEX [Suspect]
     Indication: MULTIPLE SCLEROSIS
     Dosage: IM
     Route: 030
     Dates: start: 20010901, end: 20020901
  2. AVONEX [Suspect]
     Indication: MULTIPLE SCLEROSIS
     Dosage: 30 UG; QW; IM
     Route: 030
     Dates: start: 20030301, end: 20031001
  3. NOVANTRONE [Concomitant]
  4. REBIF [Concomitant]
  5. BETASERON [Concomitant]
  6. ALTACE [Concomitant]
  7. TOPROL-XL [Concomitant]
  8. SYNTHROID [Concomitant]
  9. VOLTAREN [Concomitant]
  10. IMIPRAMINE [Concomitant]
  11. ZANAFLEX [Concomitant]
  12. BACTRIM [Concomitant]
  13. DITROPAN [Concomitant]
  14. NORVASC [Concomitant]

REACTIONS (1)
  - CARDIOMYOPATHY [None]
